FAERS Safety Report 6755734-0 (Version None)
Quarter: 2010Q2

REPORT INFORMATION
  Report Type: 
  Country: None (occurrence: None)
  Receive Date: 20100604
  Receipt Date: 20100504
  Transmission Date: 20101027
  Serious: No
  Sender: FDA-Public Use
  Company Number: US-BAYER-201015151BCC

PATIENT
  Age: 3 Year
  Sex: Female
  Weight: 16 kg

DRUGS (1)
  1. ALEVE (CAPLET) [Suspect]
     Indication: ACCIDENTAL DRUG INTAKE BY CHILD
     Dosage: 12 TABLETS ARE MISSING FROM THE 24S BOTTLE COUNT
     Route: 048
     Dates: start: 20100503, end: 20100503

REACTIONS (1)
  - NO ADVERSE EVENT [None]
